FAERS Safety Report 8509370-6 (Version None)
Quarter: 2012Q3

REPORT INFORMATION
  Report Type: 
  Country: None (occurrence: None)
  Receive Date: 20120713
  Receipt Date: 20120112
  Transmission Date: 20120928
  Serious: Yes (Death, Hospitalization)
  Sender: FDA-Public Use
  Company Number: DE-ROCHE-1085407

PATIENT
  Sex: Male

DRUGS (4)
  1. AVASTIN [Suspect]
     Indication: RECTAL CANCER
     Route: 042
     Dates: start: 20110708, end: 20110915
  2. FLUOROURACIL [Suspect]
     Indication: RECTAL CANCER
     Route: 042
     Dates: start: 20110708, end: 20110915
  3. CAMPTOSAR [Suspect]
     Indication: RECTAL CANCER
     Route: 042
     Dates: start: 20110708, end: 20110915
  4. LEUCOVORIN CALCIUM [Suspect]
     Indication: RECTAL CANCER
     Route: 042
     Dates: start: 20110708, end: 20110915

REACTIONS (15)
  - ENTEROBACTER INFECTION [None]
  - INTESTINAL PERFORATION [None]
  - C-REACTIVE PROTEIN INCREASED [None]
  - DECREASED APPETITE [None]
  - CARDIOPULMONARY FAILURE [None]
  - RECTAL ABSCESS [None]
  - WOUND DEHISCENCE [None]
  - GENERAL PHYSICAL CONDITION ABNORMAL [None]
  - POST PROCEDURAL COMPLICATION [None]
  - DEPRESSED MOOD [None]
  - STAPHYLOCOCCAL INFECTION [None]
  - FUNGAEMIA [None]
  - BRONCHOPNEUMONIA [None]
  - VOMITING [None]
  - WEIGHT DECREASED [None]
